FAERS Safety Report 5755173-5 (Version None)
Quarter: 2008Q2

REPORT INFORMATION
  Report Type: 
  Country: None (occurrence: None)
  Receive Date: 20080529
  Receipt Date: 20080529
  Transmission Date: 20081010
  Serious: Yes (Other)
  Sender: FDA-Public Use
  Company Number: None

PATIENT
  Age: 29 Year
  Sex: Female
  Weight: 116.12 kg

DRUGS (1)
  1. CHLORPROMAZINE HCL [Suspect]
     Indication: MOOD ALTERED
     Dosage: 200 MG TID PO
     Route: 048
     Dates: start: 20080319, end: 20080509

REACTIONS (1)
  - ELECTROCARDIOGRAM QT PROLONGED [None]
